FAERS Safety Report 7869857-6 (Version None)
Quarter: 2011Q4

REPORT INFORMATION
  Report Type: 
  Country: None (occurrence: None)
  Receive Date: 20111028
  Receipt Date: 20111028
  Transmission Date: 20120403
  Serious: Yes (Hospitalization)
  Sender: FDA-Public Use
  Company Number: None

PATIENT
  Age: 78 Year
  Sex: Male
  Weight: 109.5 kg

DRUGS (1)
  1. WARFARIN SODIUM [Suspect]
     Indication: CARDIAC VALVE DISEASE
     Dosage: MG PO
     Route: 048
     Dates: start: 20010710

REACTIONS (3)
  - ANAEMIA [None]
  - HAEMATOMA [None]
  - INTERNATIONAL NORMALISED RATIO ABNORMAL [None]
